FAERS Safety Report 18432104 (Version 1)
Quarter: 2020Q4

REPORT INFORMATION
  Report Type: Spontaneous
  Country: CA (occurrence: CA)
  Receive Date: 20201027
  Receipt Date: 20201027
  Transmission Date: 20210114
  Serious: Yes (Hospitalization)
  Sender: FDA-Public Use
  Company Number: CA-SAMSUNG BIOEPIS-SB-2020-32446

PATIENT
  Age: 34 Year
  Sex: Male
  Weight: 102 kg

DRUGS (8)
  1. ALENDRONATE SODIUM. [Concomitant]
     Active Substance: ALENDRONATE SODIUM
     Indication: PRODUCT USED FOR UNKNOWN INDICATION
     Dosage: UNKNOWN
     Route: 065
  2. SERTRALINE [Concomitant]
     Active Substance: SERTRALINE HYDROCHLORIDE
     Indication: DEPRESSION
     Route: 048
  3. ROSUVASTATIN. [Concomitant]
     Active Substance: ROSUVASTATIN
     Indication: LIPIDS ABNORMAL
     Route: 048
  4. INFLIXIMAB [Suspect]
     Active Substance: INFLIXIMAB
     Indication: SARCOIDOSIS
     Route: 042
  5. PREDNISONE. [Concomitant]
     Active Substance: PREDNISONE
     Indication: SARCOIDOSIS
     Route: 065
  6. VITAMIN D [Concomitant]
     Active Substance: VITAMIN D NOS
     Indication: PRODUCT USED FOR UNKNOWN INDICATION
     Dosage: UNKNOWN
     Route: 065
  7. METHOTREXATE. [Concomitant]
     Active Substance: METHOTREXATE
     Indication: PRODUCT USED FOR UNKNOWN INDICATION
     Dosage: UNKNOWN
     Route: 065
  8. RANITIDINE. [Concomitant]
     Active Substance: RANITIDINE
     Indication: PRODUCT USED FOR UNKNOWN INDICATION
     Dosage: UNKNOWN
     Route: 065

REACTIONS (9)
  - Condition aggravated [Unknown]
  - Off label use [Unknown]
  - Acute kidney injury [Unknown]
  - Malaise [Unknown]
  - Tubulointerstitial nephritis [Unknown]
  - Weight increased [Unknown]
  - Product prescribing error [Unknown]
  - Product use in unapproved indication [Unknown]
  - Inappropriate schedule of product administration [Unknown]
